FAERS Safety Report 7554963-6 (Version None)
Quarter: 2011Q2

REPORT INFORMATION
  Report Type: 
  Country: None (occurrence: None)
  Receive Date: 20110617
  Receipt Date: 20110616
  Transmission Date: 20111010
  Serious: Yes (Hospitalization)
  Sender: FDA-Public Use
  Company Number: JP-B.I. PHARMACEUTICALS,INC./RIDGEFIELD-2011-BP-15538NB

PATIENT
  Age: 94 Year
  Sex: Female

DRUGS (5)
  1. CARVEDILOL [Concomitant]
     Dosage: 5 MG
     Route: 048
     Dates: start: 20110527
  2. PRADAXA [Suspect]
     Indication: ATRIAL FIBRILLATION
     Dosage: 220 MG
     Route: 048
     Dates: start: 20110528, end: 20110531
  3. DILTIAZEM HCL [Concomitant]
     Dosage: 200 MG
     Route: 048
     Dates: start: 20110519
  4. RISPERDAL [Concomitant]
     Dosage: 2 ML
     Route: 048
     Dates: start: 20110520
  5. TRAZODONE HYDROCHLORIDE [Concomitant]
     Dosage: 25 MG
     Route: 048
     Dates: start: 20110521

REACTIONS (1)
  - INTRACARDIAC THROMBUS [None]
